FAERS Safety Report 6720623 (Version 3)
Quarter: 2019Q2

REPORT INFORMATION
  Report Type: Spontaneous
  Country: GB (occurrence: GB)
  Receive Date: 20080807
  Receipt Date: 20190524
  Transmission Date: 20190711
  Serious: Yes (Hospitalization)
  Sender: FDA-Public Use
  Company Number: GB-ELI_LILLY_AND_COMPANY-GB200807005912

PATIENT
  Age: 50 Year
  Sex: Female

DRUGS (2)
  1. GEMZAR [Suspect]
     Active Substance: GEMCITABINE HYDROCHLORIDE
     Indication: PRODUCT USED FOR UNKNOWN INDICATION
     Dosage: 1 D/F, DAILY (1/D)
     Route: 042
     Dates: start: 20071015, end: 20071022
  2. NAVELBINE [Suspect]
     Active Substance: VINORELBINE TARTRATE
     Indication: PRODUCT USED FOR UNKNOWN INDICATION
     Dosage: 1 D/F, DAILY (1/D)
     Route: 042
     Dates: start: 20071015, end: 20071022

REACTIONS (2)
  - Abdominal pain [Unknown]
  - Dyspepsia [Unknown]

NARRATIVE: CASE EVENT DATE: 200710
